FAERS Safety Report 6034828-1 (Version None)
Quarter: 2009Q1

REPORT INFORMATION
  Report Type: 
  Country: None (occurrence: None)
  Receive Date: 20090109
  Receipt Date: 20090109
  Transmission Date: 20090719
  Serious: Yes (Hospitalization, Disabling)
  Sender: FDA-Public Use
  Company Number: None

PATIENT
  Sex: Female

DRUGS (3)
  1. ZOMETA [Suspect]
     Indication: BREAST CANCER
     Dosage: 4 MG MONTHLY IV
     Route: 042
     Dates: start: 20050601, end: 20070601
  2. FEMARA [Concomitant]
  3. CARBOPLATIN [Concomitant]

REACTIONS (4)
  - BONE DISORDER [None]
  - JAW DISORDER [None]
  - ORAL CAVITY FISTULA [None]
  - PATHOLOGICAL FRACTURE [None]
